FAERS Safety Report 14987536 (Version 3)
Quarter: 2018Q3

REPORT INFORMATION
  Report Type: Report from Study
  Country: JP (occurrence: JP)
  Receive Date: 20180608
  Receipt Date: 20180917
  Transmission Date: 20181010
  Serious: Yes (Other)
  Sender: FDA-Public Use
  Company Number: JP-ROCHE-2103093

PATIENT
  Age: 63 Year
  Sex: Male
  Weight: 59 kg

DRUGS (45)
  1. TACROLIMUS HYDRATE [Suspect]
     Active Substance: TACROLIMUS
     Dosage: 8.0NG/ML
     Route: 048
     Dates: start: 20171027
  2. TACROLIMUS HYDRATE [Suspect]
     Active Substance: TACROLIMUS
     Dosage: 11.3NG/ML
     Route: 048
     Dates: start: 20171120
  3. TACROLIMUS HYDRATE [Suspect]
     Active Substance: TACROLIMUS
     Dosage: 3.1NG/ML
     Route: 048
     Dates: start: 20180223
  4. MYCOPHENOLATE MOFETIL. [Suspect]
     Active Substance: MYCOPHENOLATE MOFETIL
     Route: 048
     Dates: start: 20170906
  5. VALGANCICLOVIR HYDROCHLORIDE. [Suspect]
     Active Substance: VALGANCICLOVIR HYDROCHLORIDE
     Indication: PRODUCT USED FOR UNKNOWN INDICATION
     Dosage: DAILY DOSE AND THERAPY DATES: UNKNOWN
     Route: 065
  6. D?CHLORPHENIRAMINE MALEATE [Concomitant]
     Active Substance: DEXCHLORPHENIRAMINE MALEATE
     Dosage: 2 TABLETS
     Route: 048
  7. TACROLIMUS HYDRATE [Suspect]
     Active Substance: TACROLIMUS
     Dosage: 10.4?13.0NG/ML
     Route: 048
     Dates: start: 20170907, end: 20170908
  8. TACROLIMUS HYDRATE [Suspect]
     Active Substance: TACROLIMUS
     Dosage: 7.5NG/ML
     Route: 048
     Dates: start: 20170929
  9. TACROLIMUS HYDRATE [Suspect]
     Active Substance: TACROLIMUS
     Dosage: 8.0NG/ML
     Route: 048
     Dates: start: 20171225
  10. ARTIST [Concomitant]
     Active Substance: CARVEDILOL
     Indication: HYPERTENSION
     Route: 048
  11. TACROLIMUS HYDRATE [Suspect]
     Active Substance: TACROLIMUS
     Dosage: 9.0NG/ML
     Route: 048
     Dates: start: 20180119
  12. METHYLPREDNISOLONE. [Suspect]
     Active Substance: METHYLPREDNISOLONE
     Route: 048
     Dates: start: 20170918, end: 20170920
  13. METHYLPREDNISOLONE. [Suspect]
     Active Substance: METHYLPREDNISOLONE
     Route: 048
     Dates: start: 20170921, end: 20170927
  14. MYCOPHENOLATE MOFETIL. [Suspect]
     Active Substance: MYCOPHENOLATE MOFETIL
     Indication: PRODUCT USED FOR UNKNOWN INDICATION
     Route: 048
     Dates: start: 20170829, end: 20170904
  15. EQUA [Concomitant]
     Active Substance: VILDAGLIPTIN
     Indication: DIABETIC NEPHROPATHY
     Route: 048
  16. RITUXIMAB. [Suspect]
     Active Substance: RITUXIMAB
     Indication: RENAL TRANSPLANT
     Route: 041
     Dates: start: 20170821, end: 20170821
  17. BETAMETHASONE. [Concomitant]
     Active Substance: BETAMETHASONE
  18. BASILIXIMAB [Concomitant]
     Active Substance: BASILIXIMAB
     Route: 042
     Dates: start: 20170909, end: 20170909
  19. ALOSITOL [Concomitant]
     Active Substance: ALLOPURINOL
     Indication: DIABETIC NEPHROPATHY
     Route: 048
  20. FOSRENOL [Concomitant]
     Active Substance: LANTHANUM CARBONATE
     Indication: HYPERPHOSPHATAEMIA
     Route: 048
     Dates: start: 20170904
  21. TACROLIMUS HYDRATE [Suspect]
     Active Substance: TACROLIMUS
     Dosage: 15.4??18.9NG/ML
     Route: 048
     Dates: start: 20170909, end: 20170911
  22. TACROLIMUS HYDRATE [Suspect]
     Active Substance: TACROLIMUS
     Dosage: 7.2?11.0NG/ML
     Route: 048
     Dates: start: 20170912, end: 20170915
  23. TACROLIMUS HYDRATE [Suspect]
     Active Substance: TACROLIMUS
     Dosage: 10.7NG/ML
     Route: 048
     Dates: start: 20171013
  24. TACROLIMUS HYDRATE [Suspect]
     Active Substance: TACROLIMUS
     Dosage: 10.7?13.4NG/ML
     Route: 048
     Dates: start: 20171204, end: 20171205
  25. TACROLIMUS HYDRATE [Suspect]
     Active Substance: TACROLIMUS
     Dosage: 5.4NG/ML
     Route: 048
     Dates: start: 20180202
  26. METHYLPREDNISOLONE. [Suspect]
     Active Substance: METHYLPREDNISOLONE
     Route: 048
     Dates: start: 20170915, end: 20170917
  27. LASIX [Concomitant]
     Active Substance: FUROSEMIDE
     Indication: DIABETIC NEPHROPATHY
     Route: 048
     Dates: start: 20170904
  28. TACROLIMUS HYDRATE [Suspect]
     Active Substance: TACROLIMUS
     Dosage: 9.1NG/ML
     Route: 048
     Dates: start: 20170917
  29. TACROLIMUS HYDRATE [Suspect]
     Active Substance: TACROLIMUS
     Dosage: 8.8NG/ML
     Route: 048
     Dates: start: 20170922
  30. TACROLIMUS HYDRATE [Suspect]
     Active Substance: TACROLIMUS
     Dosage: 4.0NG/ML
     Route: 048
     Dates: start: 20180209
  31. METHYLPREDNISOLONE. [Suspect]
     Active Substance: METHYLPREDNISOLONE
     Route: 048
     Dates: start: 20170909, end: 20170911
  32. METHYLPREDNISOLONE. [Suspect]
     Active Substance: METHYLPREDNISOLONE
     Route: 048
     Dates: start: 20170912, end: 20170914
  33. METHYLPREDNISOLONE. [Suspect]
     Active Substance: METHYLPREDNISOLONE
     Route: 048
     Dates: start: 20171020
  34. CILOSTAZOL. [Concomitant]
     Active Substance: CILOSTAZOL
     Indication: THROMBOSIS PROPHYLAXIS
     Route: 048
     Dates: start: 20170907
  35. TACROLIMUS HYDRATE [Suspect]
     Active Substance: TACROLIMUS
     Dosage: 18.7NG/ML
     Route: 048
     Dates: start: 20170904, end: 20170905
  36. TACROLIMUS HYDRATE [Suspect]
     Active Substance: TACROLIMUS
     Dosage: 18.7 NG/ML
     Route: 048
     Dates: start: 20170906
  37. TACROLIMUS HYDRATE [Suspect]
     Active Substance: TACROLIMUS
     Dosage: 7.6NG/ML
     Route: 048
     Dates: start: 20170919
  38. METHYLPREDNISOLONE. [Suspect]
     Active Substance: METHYLPREDNISOLONE
     Indication: RENAL TRANSPLANT
     Route: 048
     Dates: start: 20170902, end: 20170904
  39. BASILIXIMAB [Concomitant]
     Active Substance: BASILIXIMAB
     Route: 042
     Dates: start: 20170905, end: 20170905
  40. CELESTAMINE (FRANCE) [Concomitant]
     Indication: PREMEDICATION
     Route: 048
     Dates: start: 20170821, end: 20170821
  41. TACROLIMUS HYDRATE [Suspect]
     Active Substance: TACROLIMUS
     Indication: RENAL TRANSPLANT
     Dosage: 10.6?13.9NG/ML
     Route: 048
     Dates: start: 20170902
  42. TACROLIMUS HYDRATE [Suspect]
     Active Substance: TACROLIMUS
     Dosage: 19.8NG/ML
     Route: 048
     Dates: start: 20171113
  43. METHYLPREDNISOLONE SODIUM SUCCINATE. [Suspect]
     Active Substance: METHYLPREDNISOLONE SODIUM SUCCINATE
     Indication: RENAL TRANSPLANT
     Route: 042
     Dates: start: 20170906, end: 20170908
  44. METHYLPREDNISOLONE. [Suspect]
     Active Substance: METHYLPREDNISOLONE
     Route: 048
     Dates: start: 20170928, end: 20171019
  45. PROTECADIN [Concomitant]
     Active Substance: LAFUTIDINE
     Route: 048
     Dates: start: 20170907

REACTIONS (2)
  - Neutrophil count decreased [Recovered/Resolved]
  - Cytomegalovirus viraemia [Recovered/Resolved]

NARRATIVE: CASE EVENT DATE: 20171027
